FAERS Safety Report 9918660 (Version 3)
Quarter: 2014Q1

REPORT INFORMATION
  Report Type: Report from Study
  Country: US (occurrence: US)
  Receive Date: 20140224
  Receipt Date: 20140326
  Transmission Date: 20141002
  Serious: Yes (Other)
  Sender: FDA-Public Use
  Company Number: US-ROCHE-1352959

PATIENT
  Age: 57 Year
  Sex: Female

DRUGS (6)
  1. RITUXAN [Suspect]
     Indication: SARCOIDOSIS
     Route: 042
     Dates: start: 201303
  2. RITUXAN [Suspect]
     Indication: POLYARTHRITIS
  3. PREDNISONE [Suspect]
     Indication: RHEUMATOID ARTHRITIS
     Route: 014
     Dates: start: 201303
  4. PREDNISONE [Suspect]
     Route: 048
  5. GLUCOTROL [Concomitant]
     Indication: BLOOD GLUCOSE DECREASED
     Route: 048
     Dates: start: 201303
  6. METHOTREXATE [Concomitant]
     Indication: RHEUMATOID ARTHRITIS
     Route: 058
     Dates: end: 201312

REACTIONS (3)
  - Knee arthroplasty [Recovered/Resolved]
  - Blood glucose increased [Not Recovered/Not Resolved]
  - Off label use [Unknown]
